FAERS Safety Report 22643684 (Version 1)
Quarter: 2023Q2

REPORT INFORMATION
  Report Type: Spontaneous
  Country: PT (occurrence: PT)
  Receive Date: 20230627
  Receipt Date: 20230627
  Transmission Date: 20230722
  Serious: Yes (Hospitalization, Other)
  Sender: FDA-Public Use
  Company Number: PT-MLMSERVICE-20220107-3307400-1

PATIENT
  Age: 80 Year
  Sex: Female

DRUGS (2)
  1. OLANZAPINE [Suspect]
     Active Substance: OLANZAPINE
     Indication: Mania
     Dosage: UNK , UNK
  2. LITHIUM [Suspect]
     Active Substance: LITHIUM
     Indication: Bipolar I disorder
     Dosage: 600 MG, ONCE PER DAY

REACTIONS (1)
  - Pleurothotonus [Recovered/Resolved]
